FAERS Safety Report 13067283 (Version 2)
Quarter: 2017Q1

REPORT INFORMATION
  Report Type: Report from Study
  Country: US (occurrence: US)
  Receive Date: 20161228
  Receipt Date: 20170116
  Transmission Date: 20170428
  Serious: No
  Sender: FDA-Public Use
  Company Number: US-AMGEN-USASL2016183289

PATIENT
  Sex: Female

DRUGS (1)
  1. ENBREL [Suspect]
     Active Substance: ETANERCEPT
     Indication: ANKYLOSING SPONDYLITIS
     Dosage: UNK
     Route: 065

REACTIONS (7)
  - Diabetic neuropathy [Unknown]
  - Injection site swelling [Unknown]
  - Injection site hypoaesthesia [Unknown]
  - Bronchitis [Unknown]
  - Injection site mass [Unknown]
  - Pain [Unknown]
  - Injection site pain [Unknown]
